FAERS Safety Report 9104940 (Version 3)
Quarter: 2013Q2

REPORT INFORMATION
  Report Type: Spontaneous
  Country: US (occurrence: US)
  Receive Date: 20130220
  Receipt Date: 20130510
  Transmission Date: 20140414
  Serious: No
  Sender: FDA-Public Use
  Company Number: US-ASTRAZENECA-2008UW28708

PATIENT
  Age: 69 Year
  Sex: Female

DRUGS (4)
  1. RHINOCORT AQUA [Suspect]
     Route: 045
  2. NEXIUM [Suspect]
     Route: 048
  3. OMEPRAZOLE [Suspect]
     Route: 048
  4. OTHER MEDICATIONS [Concomitant]

REACTIONS (10)
  - Dyspepsia [Unknown]
  - Abdominal discomfort [Unknown]
  - Ear disorder [Unknown]
  - Throat irritation [Unknown]
  - Gastritis [Unknown]
  - Drug intolerance [Unknown]
  - Intentional drug misuse [Unknown]
  - Medication error [Unknown]
  - Drug dose omission [Unknown]
  - Drug ineffective [Unknown]
